FAERS Safety Report 7472371-3 (Version None)
Quarter: 2011Q2

REPORT INFORMATION
  Report Type: 
  Country: None (occurrence: None)
  Receive Date: 20110511
  Receipt Date: 20110429
  Transmission Date: 20111010
  Serious: Yes (Hospitalization, Other)
  Sender: FDA-Public Use
  Company Number: PHHY2010US78014

PATIENT
  Sex: Male
  Weight: 86 kg

DRUGS (14)
  1. METFORMIN HCL [Concomitant]
     Dosage: 1 DF, UNK
     Route: 048
  2. LANTUS [Concomitant]
  3. LOVENOX [Concomitant]
     Dosage: UNK
  4. COMBIVENT [Concomitant]
     Dosage: 1 PUFFS BY INHALATION PRN
  5. INSULIN HUMAN [Concomitant]
  6. EXJADE [Suspect]
     Indication: APLASTIC ANAEMIA
     Dosage: 1750 MG, QD
     Route: 048
     Dates: start: 20100813, end: 20100904
  7. DEPAKOTE [Concomitant]
     Dosage: 2 PO AT HS
  8. MULTI-VITAMINS [Concomitant]
     Dosage: 1000 MG, DAILY
  9. GLIPIZIDE [Concomitant]
     Dosage: 2 DF, UNK
     Route: 048
  10. ANDROGEL [Concomitant]
  11. EXJADE [Suspect]
     Indication: IRON OVERLOAD
     Dosage: UNK
     Dates: end: 20100928
  12. CYCLOSPORINE [Concomitant]
     Indication: HAEMOLYTIC ANAEMIA
     Dosage: 300 MG, DAILY
     Dates: start: 20100609, end: 20100930
  13. VITAMIN B-12 [Concomitant]
     Dosage: 1 DF, UNK
     Route: 048
  14. CALCIUM [Concomitant]

REACTIONS (13)
  - FATIGUE [None]
  - ERECTILE DYSFUNCTION [None]
  - ABDOMINAL PAIN [None]
  - DYSPNOEA EXERTIONAL [None]
  - WEIGHT DECREASED [None]
  - HYPOGLYCAEMIA [None]
  - DEEP VEIN THROMBOSIS [None]
  - RENAL FAILURE [None]
  - NEPHROGENIC ANAEMIA [None]
  - RENAL IMPAIRMENT [None]
  - PAIN IN EXTREMITY [None]
  - DRUG INTOLERANCE [None]
  - NAUSEA [None]
